FAERS Safety Report 20648936 (Version 1)
Quarter: 2022Q1

REPORT INFORMATION
  Report Type: Spontaneous
  Country: US (occurrence: None)
  Receive Date: 20220329
  Receipt Date: 20220329
  Transmission Date: 20220423
  Serious: Yes (Life-Threatening)
  Sender: FDA-Public Use
  Company Number: None

PATIENT
  Age: 77 Year
  Sex: Female
  Weight: 56.7 kg

DRUGS (1)
  1. BEBTELOVIMAB [Suspect]
     Active Substance: BEBTELOVIMAB
     Indication: COVID-19
     Dosage: OTHER FREQUENCY : ONCE;?
     Route: 040
     Dates: start: 20220328, end: 20220328

REACTIONS (4)
  - Infusion related reaction [None]
  - Erythema [None]
  - Dyspnoea [None]
  - Oxygen saturation decreased [None]

NARRATIVE: CASE EVENT DATE: 20220328
